FAERS Safety Report 5917036-1 (Version None)
Quarter: 2008Q4

REPORT INFORMATION
  Report Type: 
  Country: None (occurrence: None)
  Receive Date: 20081009
  Receipt Date: 20081009
  Transmission Date: 20090506
  Serious: Yes (Hospitalization, Disabling)
  Sender: FDA-Public Use
  Company Number: None

PATIENT
  Age: 46 Year
  Sex: Female
  Weight: 54.4316 kg

DRUGS (3)
  1. LEVAQUIN [Suspect]
     Indication: EAR INFECTION
     Dosage: 500 MG 1 PER DAY PO
     Route: 048
     Dates: start: 20080929, end: 20081002
  2. LEVAQUIN [Suspect]
     Indication: SINUSITIS
     Dosage: 500 MG 1 PER DAY PO
     Route: 048
     Dates: start: 20080929, end: 20081002
  3. MOTRIN [Concomitant]

REACTIONS (3)
  - ANXIETY [None]
  - INSOMNIA [None]
  - SUICIDAL IDEATION [None]
